FAERS Safety Report 4757386-8 (Version None)
Quarter: 2005Q3

REPORT INFORMATION
  Report Type: 
  Country: None (occurrence: None)
  Receive Date: 20050829
  Receipt Date: 20050818
  Transmission Date: 20060218
  Serious: Yes (Other)
  Sender: FDA-Public Use
  Company Number: 200511602BWH

PATIENT

DRUGS (2)
  1. AVELOX [Suspect]
     Indication: INFECTION
     Dosage: 400 MG, QD, ORAL
     Route: 048
     Dates: start: 20050801
  2. TAPAZOLE [Suspect]

REACTIONS (5)
  - AGRANULOCYTOSIS [None]
  - DRUG INTERACTION [None]
  - HAEMATOCRIT DECREASED [None]
  - PLATELET COUNT DECREASED [None]
  - WHITE BLOOD CELL COUNT DECREASED [None]
